FAERS Safety Report 24191425 (Version 1)
Quarter: 2024Q3

REPORT INFORMATION
  Report Type: Spontaneous
  Country: FR (occurrence: FR)
  Receive Date: 20240808
  Receipt Date: 20240808
  Transmission Date: 20241016
  Serious: Yes (Other)
  Sender: TEVA
  Company Number: None

PATIENT
  Age: 43 Year
  Sex: Male
  Weight: 73 kg

DRUGS (2)
  1. OXALIPLATIN [Suspect]
     Active Substance: OXALIPLATIN
     Indication: Gastric cancer
     Dosage: TIME INTERVAL: CYCLICAL: C8
     Route: 042
     Dates: start: 20240226, end: 20240226
  2. ONDANSETRON [Suspect]
     Active Substance: ONDANSETRON
     Indication: Prophylaxis of nausea and vomiting
     Dosage: TIME INTERVAL: CYCLICAL: C8, 2 MG/ML, SOLUTION FOR INJECTION IN AMPOULE (I.V.)
     Route: 042
     Dates: start: 20240226, end: 20240226

REACTIONS (1)
  - Type I hypersensitivity [Recovered/Resolved]

NARRATIVE: CASE EVENT DATE: 20240226
